FAERS Safety Report 4461333-6 (Version None)
Quarter: 2004Q3

REPORT INFORMATION
  Report Type: 
  Country: None (occurrence: None)
  Receive Date: 20040928
  Receipt Date: 20040923
  Transmission Date: 20050211
  Serious: Yes (Hospitalization)
  Sender: FDA-Public Use
  Company Number: US-JNJFOC-20040907804

PATIENT
  Age: 29 Year
  Sex: Male

DRUGS (2)
  1. CONCERTA [Suspect]
     Route: 049
  2. XENICAL [Suspect]
     Indication: DRUG USE FOR UNKNOWN INDICATION

REACTIONS (7)
  - CHEST DISCOMFORT [None]
  - FEELING HOT [None]
  - HEART RATE INCREASED [None]
  - HYPERHIDROSIS [None]
  - NAUSEA [None]
  - SKIN WARM [None]
  - VOMITING [None]
